FAERS Safety Report 5816041-3 (Version None)
Quarter: 2008Q3

REPORT INFORMATION
  Report Type: 
  Country: None (occurrence: None)
  Receive Date: 20080721
  Receipt Date: 20080710
  Transmission Date: 20090109
  Serious: Yes (Hospitalization)
  Sender: FDA-Public Use
  Company Number: ES-ELI_LILLY_AND_COMPANY-ES200807002499

PATIENT
  Age: 75 Year
  Sex: Female

DRUGS (10)
  1. FORTEO [Suspect]
     Indication: OSTEOPOROSIS
     Dosage: 20 UG, UNKNOWN
     Route: 058
     Dates: start: 20080609, end: 20080611
  2. FORTEO [Suspect]
     Dosage: 20 UG, UNKNOWN
     Route: 058
     Dates: start: 20080620
  3. AVANDAMET [Concomitant]
     Dosage: UNK, UNKNOWN
     Route: 065
  4. RECIT [Concomitant]
     Dosage: UNK, UNKNOWN
     Route: 065
  5. ZOLPIDEM TARTRATE [Concomitant]
     Dosage: UNK, UNKNOWN
     Route: 065
  6. ORFIDAL [Concomitant]
     Dosage: UNK, UNKNOWN
     Route: 065
  7. CARDYL [Concomitant]
     Dosage: UNK, UNKNOWN
     Route: 065
  8. DURAGESIC-100 [Concomitant]
     Dosage: UNK, UNKNOWN
     Route: 065
  9. NORVASC [Concomitant]
     Dosage: UNK, UNKNOWN
     Route: 065
  10. RONAME [Concomitant]
     Dosage: UNK, UNKNOWN
     Route: 065

REACTIONS (2)
  - PAIN [None]
  - PNEUMONIA [None]
